FAERS Safety Report 23743418 (Version 2)
Quarter: 2024Q2

REPORT INFORMATION
  Report Type: Spontaneous
  Country: CH (occurrence: CH)
  Receive Date: 20240415
  Receipt Date: 20240417
  Transmission Date: 20240716
  Serious: Yes (Other)
  Sender: FDA-Public Use
  Company Number: CH-BAYER-2024A051803

PATIENT
  Sex: Male

DRUGS (1)
  1. NUBEQA [Suspect]
     Active Substance: DAROLUTAMIDE
     Dosage: UNK

REACTIONS (8)
  - Erectile dysfunction [None]
  - Self esteem decreased [None]
  - Hypotrichosis [None]
  - Alopecia [None]
  - Muscle atrophy [None]
  - Dairy intolerance [None]
  - Asthenia [None]
  - Fatigue [None]
